FAERS Safety Report 8294643 (Version 6)
Quarter: 2013Q4

REPORT INFORMATION
  Report Type: Report from Study
  Country: AU (occurrence: AU)
  Receive Date: 20111216
  Receipt Date: 20131204
  Transmission Date: 20140711
  Serious: Yes (Other)
  Sender: FDA-Public Use
  Company Number: AU-ROCHE-1014849

PATIENT
  Age: 55 Year
  Sex: Male
  Weight: 97.3 kg

DRUGS (5)
  1. VEMURAFENIB [Suspect]
     Indication: METASTATIC MALIGNANT MELANOMA
     Dosage: RECENT DOSE ON 05/OCT/2011
     Route: 048
     Dates: start: 20100503
  2. GDC-0973 [Suspect]
     Indication: METASTATIC MALIGNANT MELANOMA
     Dosage: FOR 14 DAYS, DATE OF LAST DOSE PRIOR TO SAE: 05 OCT 2011
     Route: 048
     Dates: start: 20110630
  3. OXAZEPAM [Concomitant]
     Dosage: THERAPY WAS ONGOING.
     Route: 065
     Dates: start: 20110526
  4. PANADEINE FORTE [Concomitant]
     Dosage: 2 TABLETS
     Route: 065
     Dates: start: 20110616
  5. DESVENLAFAXINE [Concomitant]
     Dosage: THERAPY WAS ONGOING.
     Route: 065
     Dates: start: 20110620

REACTIONS (1)
  - Tonsil cancer [Not Recovered/Not Resolved]
